FAERS Safety Report 16616975 (Version 6)
Quarter: 2019Q4

REPORT INFORMATION
  Report Type: Report from Study
  Country: US (occurrence: US)
  Receive Date: 20190723
  Receipt Date: 20191126
  Transmission Date: 20200122
  Serious: Yes (Other)
  Sender: FDA-Public Use
  Company Number: US-PFIZER INC-2019309310

PATIENT
  Age: 58 Year
  Sex: Female

DRUGS (3)
  1. IBRANCE [Suspect]
     Active Substance: PALBOCICLIB
     Dosage: 100 MG, CYCLIC (21 DAYS ON AND 7 DAYS OFF)
     Route: 048
     Dates: start: 20190730
  2. FASLODEX [Concomitant]
     Active Substance: FULVESTRANT
     Dosage: UNK
     Route: 030
  3. IBRANCE [Suspect]
     Active Substance: PALBOCICLIB
     Indication: BREAST CANCER FEMALE
     Dosage: 125 MG, CYCLIC (FOR 21 DAYS ON AND 7 DAYS OFF)
     Route: 048
     Dates: start: 20190701, end: 201907

REACTIONS (11)
  - Neuropathy peripheral [Unknown]
  - Mucosal inflammation [Recovering/Resolving]
  - Toothache [Recovering/Resolving]
  - Dry mouth [Unknown]
  - Dry eye [Unknown]
  - Nausea [Unknown]
  - Alopecia [Recovering/Resolving]
  - White blood cell count decreased [Not Recovered/Not Resolved]
  - Stomatitis [Recovering/Resolving]
  - Tongue disorder [Unknown]
  - Superficial injury of eye [Unknown]

NARRATIVE: CASE EVENT DATE: 2019
